FAERS Safety Report 10434675 (Version 1)
Quarter: 2014Q2

REPORT INFORMATION
  Report Type: Spontaneous
  Country: US (occurrence: None)
  Receive Date: 20140514
  Receipt Date: 20140514
  Transmission Date: 20141212
  Serious: Yes (Other)
  Sender: FDA-Public Use
  Company Number: 050754U

PATIENT
  Sex: Female

DRUGS (1)
  1. CIMZIA [Suspect]
     Indication: CROHN^S DISEASE
     Dosage: 1X/MONTH,
     Route: 058
     Dates: start: 20111130, end: 201209

REACTIONS (3)
  - Crohn^s disease [None]
  - Drug ineffective [None]
  - Pregnancy [None]
